FAERS Safety Report 16617949 (Version 2)
Quarter: 2019Q3

REPORT INFORMATION
  Report Type: Report from Study
  Country: CA (occurrence: CA)
  Receive Date: 20190723
  Receipt Date: 20190808
  Transmission Date: 20191004
  Serious: Yes (Other)
  Sender: FDA-Public Use
  Company Number: CA-JNJFOC-20190716447

PATIENT
  Age: 67 Year
  Sex: Male
  Weight: 74.7 kg

DRUGS (1)
  1. REMICADE [Suspect]
     Active Substance: INFLIXIMAB
     Indication: CROHN^S DISEASE
     Dosage: DOSE REPORTED AS 5 MG/KG
     Route: 042
     Dates: start: 20130723, end: 20190802

REACTIONS (2)
  - Plasma cell myeloma [Unknown]
  - Skin cancer [Unknown]

NARRATIVE: CASE EVENT DATE: 20190802
